FAERS Safety Report 4525446-2 (Version None)
Quarter: 2004Q4

REPORT INFORMATION
  Report Type: 
  Country: None (occurrence: None)
  Receive Date: 20041210
  Receipt Date: 20041126
  Transmission Date: 20050328
  Serious: Yes (Hospitalization)
  Sender: FDA-Public Use
  Company Number: 2004BI000257

PATIENT
  Age: 43 Year
  Sex: Female
  Weight: 77.1115 kg

DRUGS (8)
  1. AVONEX [Suspect]
     Indication: MULTIPLE SCLEROSIS
     Dosage: 30 UG; QW; IM
     Route: 030
     Dates: start: 20010101, end: 20030501
  2. AVONEX [Suspect]
     Indication: MULTIPLE SCLEROSIS
     Dosage: 30 UG; QW; IM
     Route: 030
     Dates: start: 20030501
  3. PREMARIN [Concomitant]
  4. SYNTHROID [Concomitant]
  5. PROVIGIL (MODAFINAL) [Concomitant]
  6. AMBIEN [Concomitant]
  7. LEXPAPRO (ESCITALOPRAM OXALATE) [Concomitant]
  8. HYDROCHLOROTHIAZIDE [Concomitant]

REACTIONS (6)
  - ANAEMIA [None]
  - EXOSTOSIS [None]
  - FALL [None]
  - GALLBLADDER DISORDER [None]
  - POLYMENORRHOEA [None]
  - THYROID DISORDER [None]
